FAERS Safety Report 20099304 (Version 1)
Quarter: 2021Q4

REPORT INFORMATION
  Report Type: Spontaneous
  Country: CN (occurrence: CN)
  Receive Date: 20211122
  Receipt Date: 20211122
  Transmission Date: 20220303
  Serious: Yes (Other)
  Sender: FDA-Public Use
  Company Number: CN-BAXTER-2021BAX036364

PATIENT
  Age: 65 Year
  Sex: Female
  Weight: 64 kg

DRUGS (12)
  1. CYCLOPHOSPHAMIDE [Suspect]
     Active Substance: CYCLOPHOSPHAMIDE
     Indication: Breast cancer female
     Dosage: FIRST AND SECOND CHEMOTHERAPY
     Route: 042
  2. CYCLOPHOSPHAMIDE [Suspect]
     Active Substance: CYCLOPHOSPHAMIDE
     Dosage: THIRD CHEMOTHERAPY
     Route: 042
     Dates: start: 20210928, end: 20210928
  3. CYCLOPHOSPHAMIDE [Suspect]
     Active Substance: CYCLOPHOSPHAMIDE
     Dosage: DOSE RE-INTRODUCED
     Route: 042
  4. SODIUM CHLORIDE [Suspect]
     Active Substance: SODIUM CHLORIDE
     Indication: Medication dilution
     Dosage: THIRD CHEMOTHERAPY CYCLOPHOSPHAMIDE FOR INJECTION (ENDOXAN CTX) (1000 MG) WITH NS (50 ML)
     Route: 042
     Dates: start: 20211028, end: 20211028
  5. SODIUM CHLORIDE [Suspect]
     Active Substance: SODIUM CHLORIDE
     Dosage: THIRD CHEMOTHERAPY WITH EPIRUBICIN HYDROCHLORIDE FOR INJECTION (PHARMORUBICIN) 135 MG WITH NS 100ML
     Route: 041
     Dates: start: 20211028, end: 20211028
  6. SODIUM CHLORIDE [Suspect]
     Active Substance: SODIUM CHLORIDE
     Dosage: DOSE REINTRODUCED WITH CYCLOPHOSPHAMIDE
     Route: 042
  7. SODIUM CHLORIDE [Suspect]
     Active Substance: SODIUM CHLORIDE
     Dosage: DOSE REINTRODUCED WITH EPIRUBICIN
     Route: 041
  8. SODIUM CHLORIDE [Suspect]
     Active Substance: SODIUM CHLORIDE
     Dosage: FIRST AND SECOND CHEMOTHERAPY DILUTED WITH CYCLOPHOSPHAMIDE FOR INJECTION (ENDOXAN CTX)
     Route: 042
  9. SODIUM CHLORIDE [Suspect]
     Active Substance: SODIUM CHLORIDE
     Dosage: FIRST AND SECOND CHEMOTHERAPY DILUTED WITH EPIRUBICIN HYDROCHLORIDE FOR INJECTION (PHARMORUBICIN)
     Route: 041
  10. EPIRUBICIN [Suspect]
     Active Substance: EPIRUBICIN
     Indication: Breast cancer female
     Dosage: FIRST AND SECOND CHEMOTHERAPY
     Route: 041
  11. EPIRUBICIN [Suspect]
     Active Substance: EPIRUBICIN
     Dosage: THIRD CHEMOTHERAPY
     Route: 041
     Dates: start: 20210928, end: 20210928
  12. EPIRUBICIN [Suspect]
     Active Substance: EPIRUBICIN
     Dosage: DOSE REINTRODUCED
     Route: 041

REACTIONS (2)
  - White blood cell count decreased [Recovered/Resolved]
  - Agranulocytosis [Recovered/Resolved]

NARRATIVE: CASE EVENT DATE: 20211008
